FAERS Safety Report 10404577 (Version 1)
Quarter: 2014Q2

REPORT INFORMATION
  Report Type: Spontaneous
  Country: US (occurrence: None)
  Receive Date: 20140528
  Receipt Date: 20140528
  Transmission Date: 20141212
  Serious: Yes (Hospitalization)
  Sender: FDA-Public Use
  Company Number: 1253524

PATIENT
  Sex: Female

DRUGS (1)
  1. VALCYTE (VALGANCICLOVIR HYDROCHLORIDE) (VALGANCICLOVIR HYDROCHLORIDE) [Suspect]
     Indication: ANTIVIRAL PROPHYLAXIS

REACTIONS (1)
  - Transplant rejection [None]
